FAERS Safety Report 5483180-9 (Version None)
Quarter: 2007Q4

REPORT INFORMATION
  Report Type: 
  Country: None (occurrence: None)
  Receive Date: 20071005
  Receipt Date: 20070924
  Transmission Date: 20080405
  Serious: Yes (Congenital Anomaly)
  Sender: FDA-Public Use
  Company Number: 2007AL003987

PATIENT
  Age: 37 Month

DRUGS (2)
  1. DIAZEPAM [Suspect]
  2. METHADONE HCL [Concomitant]

REACTIONS (3)
  - CONGENITAL NYSTAGMUS [None]
  - DRUG EXPOSURE DURING PREGNANCY [None]
  - NYSTAGMUS [None]
